FAERS Safety Report 22045556 (Version 1)
Quarter: 2023Q1

REPORT INFORMATION
  Report Type: Spontaneous
  Country: IT (occurrence: IT)
  Receive Date: 20230228
  Receipt Date: 20230228
  Transmission Date: 20230417
  Serious: Yes (Hospitalization, Other)
  Sender: FDA-Public Use
  Company Number: None

PATIENT
  Age: 79 Year
  Sex: Female

DRUGS (2)
  1. NEBIVOLOL HYDROCHLORIDE [Suspect]
     Active Substance: NEBIVOLOL HYDROCHLORIDE
     Dosage: 50 MG, TOTAL
     Route: 048
     Dates: start: 20220614, end: 20220614
  2. INSULIN LISPRO [Suspect]
     Active Substance: INSULIN LISPRO
     Dosage: 80 IU, TOTAL
     Route: 058
     Dates: start: 20220614, end: 20220614

REACTIONS (4)
  - Hypokalaemia [Unknown]
  - Hypoglycaemia [Unknown]
  - Sopor [Recovered/Resolved]
  - Intentional self-injury [Recovering/Resolving]

NARRATIVE: CASE EVENT DATE: 20220614
